FAERS Safety Report 14427616 (Version 3)
Quarter: 2018Q2

REPORT INFORMATION
  Report Type: Report from Study
  Country: BE (occurrence: BE)
  Receive Date: 20180123
  Receipt Date: 20180509
  Transmission Date: 20180711
  Serious: Yes (Other)
  Sender: FDA-Public Use
  Company Number: BE-B.I. PHARMACEUTICALS,INC./RIDGEFIELD-2018-BI-002906

PATIENT
  Age: 47 Year
  Sex: Female
  Weight: 82.5 kg

DRUGS (14)
  1. PACLITAXEL. [Concomitant]
     Active Substance: PACLITAXEL
     Indication: CERVIX CARCINOMA
     Dosage: 40 MG/ML STRENGTH
     Route: 042
     Dates: start: 20171121, end: 20180109
  2. CARBOPLATIN. [Concomitant]
     Active Substance: CARBOPLATIN
     Indication: CERVIX CARCINOMA
     Dosage: AUC 2.0
     Route: 042
     Dates: start: 20171121, end: 20180109
  3. IMODIUM [Concomitant]
     Active Substance: LOPERAMIDE HYDROCHLORIDE
     Indication: DIARRHOEA
     Route: 048
     Dates: start: 20171024
  4. BIBF 1120 [Suspect]
     Active Substance: NINTEDANIB
     Indication: CERVIX CARCINOMA
     Route: 048
     Dates: start: 20171121, end: 20180102
  5. CO BISOPROLOL [Concomitant]
     Indication: HYPERTENSION
     Dosage: 5-12.5 MG
     Route: 048
     Dates: start: 20171001
  6. CETRIZINE [Concomitant]
     Active Substance: CETIRIZINE HYDROCHLORIDE
     Indication: PREMEDICATION
     Route: 048
     Dates: start: 20171009
  7. TITAN [Concomitant]
     Indication: NAUSEA
     Route: 048
     Dates: start: 20171017
  8. TITAN [Concomitant]
     Route: 042
     Dates: start: 20171031, end: 20171031
  9. MEDROL [Concomitant]
     Active Substance: METHYLPREDNISOLONE
     Indication: PREMEDICATION
     Route: 048
     Dates: start: 20171009
  10. PANTOMED [Concomitant]
     Indication: PREMEDICATION
     Route: 042
     Dates: start: 20171031, end: 20171031
  11. PARACETAMOL [Concomitant]
     Active Substance: ACETAMINOPHEN
     Indication: PAIN
     Dosage: 18 PRN
     Route: 048
     Dates: start: 20170927
  12. COVERSYL [Concomitant]
     Active Substance: PERINDOPRIL
     Indication: HYPERTENSION
     Route: 048
     Dates: start: 20171031
  13. PANTOMED [Concomitant]
     Indication: NAUSEA
     Route: 048
  14. RANITIDINE. [Concomitant]
     Active Substance: RANITIDINE
     Indication: PREMEDICATION
     Dosage: 300 MILLIGRAM ONCE EVERY WEEK
     Route: 048
     Dates: start: 20171009

REACTIONS (1)
  - Pancreatitis [Not Recovered/Not Resolved]

NARRATIVE: CASE EVENT DATE: 20180110
